FAERS Safety Report 12315084 (Version 2)
Quarter: 2016Q2

REPORT INFORMATION
  Report Type: Report from Study
  Country: IN (occurrence: IN)
  Receive Date: 20160428
  Receipt Date: 20160611
  Transmission Date: 20160815
  Serious: Yes (Hospitalization)
  Sender: FDA-Public Use
  Company Number: IN-BIOGEN-2016BI00228201

PATIENT
  Age: 46 Year
  Sex: Female

DRUGS (1)
  1. AVONEX [Suspect]
     Active Substance: INTERFERON BETA-1A
     Indication: MULTIPLE SCLEROSIS
     Route: 030
     Dates: start: 20120614

REACTIONS (4)
  - Facial paralysis [Recovered/Resolved]
  - Muscle fatigue [Not Recovered/Not Resolved]
  - Abasia [Not Recovered/Not Resolved]
  - Hypoaesthesia [Recovered/Resolved]

NARRATIVE: CASE EVENT DATE: 20141101
